FAERS Safety Report 8432559-1 (Version None)
Quarter: 2012Q2

REPORT INFORMATION
  Report Type: 
  Country: None (occurrence: None)
  Receive Date: 20120613
  Receipt Date: 20120531
  Transmission Date: 20120825
  Serious: Yes (Hospitalization)
  Sender: FDA-Public Use
  Company Number: US-SANOFI-AVENTIS-2012SA038884

PATIENT
  Age: 21 Year
  Sex: Female

DRUGS (12)
  1. ISONIAZID [Suspect]
     Indication: SUICIDE ATTEMPT
     Route: 065
  2. ETHAMBUTOL HYDROCHLORIDE [Suspect]
     Route: 065
  3. RIFAMPICIN [Suspect]
     Indication: SUICIDE ATTEMPT
     Route: 065
  4. ISONIAZID [Suspect]
     Indication: TUBERCULOSIS
     Route: 065
  5. RIFAMPICIN [Suspect]
     Indication: TUBERCULOSIS
     Route: 065
  6. ETHAMBUTOL HYDROCHLORIDE [Suspect]
     Indication: SUICIDE ATTEMPT
     Route: 065
  7. RIFAMPICIN [Suspect]
     Route: 065
  8. ISONIAZID [Suspect]
     Route: 065
  9. ETHAMBUTOL HYDROCHLORIDE [Suspect]
     Route: 065
  10. RIFAMPICIN [Suspect]
     Route: 065
  11. ETHAMBUTOL HYDROCHLORIDE [Suspect]
     Indication: TUBERCULOSIS
     Route: 065
  12. ISONIAZID [Suspect]
     Route: 065

REACTIONS (16)
  - RHABDOMYOLYSIS [None]
  - LIVER INJURY [None]
  - BLOOD BICARBONATE DECREASED [None]
  - POSTURE ABNORMAL [None]
  - VOMITING [None]
  - LOSS OF CONSCIOUSNESS [None]
  - ASPARTATE AMINOTRANSFERASE INCREASED [None]
  - BLOOD PH DECREASED [None]
  - ALANINE AMINOTRANSFERASE INCREASED [None]
  - SUICIDE ATTEMPT [None]
  - CONVULSION [None]
  - INTENTIONAL OVERDOSE [None]
  - BLOOD CREATINE PHOSPHOKINASE INCREASED [None]
  - METABOLIC ACIDOSIS [None]
  - PUPIL FIXED [None]
  - UNRESPONSIVE TO STIMULI [None]
